FAERS Safety Report 20560087 (Version 1)
Quarter: 2022Q1

REPORT INFORMATION
  Report Type: Spontaneous
  Country: CA (occurrence: CA)
  Receive Date: 20220307
  Receipt Date: 20220307
  Transmission Date: 20220423
  Serious: Yes (Disabling, Other)
  Sender: FDA-Public Use
  Company Number: CA-PFIZER INC-202200315029

PATIENT
  Age: 75 Year
  Sex: Male

DRUGS (5)
  1. BOSUTINIB [Suspect]
     Active Substance: BOSUTINIB
     Dosage: UNK
     Route: 065
  2. IMATINIB [Suspect]
     Active Substance: IMATINIB
     Indication: Chronic myeloid leukaemia
     Dosage: 400 MG, 1X/DAY
     Route: 048
  3. IMATINIB [Suspect]
     Active Substance: IMATINIB
     Dosage: UNK
     Route: 065
  4. NILOTINIB [Suspect]
     Active Substance: NILOTINIB
     Indication: Chronic myeloid leukaemia
     Dosage: UNK
     Route: 065
  5. NILOTINIB [Suspect]
     Active Substance: NILOTINIB
     Indication: Chronic myeloid leukaemia
     Dosage: 300 MG, 2X/DAY
     Route: 048

REACTIONS (6)
  - Cerebrovascular accident [Recovered/Resolved]
  - Drug intolerance [Recovered/Resolved]
  - Myalgia [Recovered/Resolved]
  - Peripheral swelling [Recovered/Resolved]
  - Visual impairment [Recovered/Resolved]
  - Neoplasm progression [Recovered/Resolved]
